FAERS Safety Report 7827429 (Version 3)
Quarter: 2015Q3

REPORT INFORMATION
  Report Type: Report from Study
  Country: AU (occurrence: AU)
  Receive Date: 20110225
  Receipt Date: 20150729
  Transmission Date: 20151125
  Serious: Yes (Other)
  Sender: FDA-Public Use
  Company Number: PHHY2011AU11387

PATIENT
  Sex: Male

DRUGS (7)
  1. NIFEDIPINE. [Concomitant]
     Active Substance: NIFEDIPINE
     Indication: PRODUCT USED FOR UNKNOWN INDICATION
     Dosage: UNK
     Route: 065
  2. DIAZEPAM. [Concomitant]
     Active Substance: DIAZEPAM
     Indication: PRODUCT USED FOR UNKNOWN INDICATION
     Dosage: 10 MG, QID
     Route: 065
  3. CLOZARIL [Suspect]
     Active Substance: CLOZAPINE
     Dosage: 75 MG, BID
     Route: 048
  4. CLOZARIL [Suspect]
     Active Substance: CLOZAPINE
     Indication: SCHIZOPHRENIA
     Dosage: 50 MG, BID
     Route: 048
  5. VALPROATE SODIUM. [Concomitant]
     Active Substance: VALPROATE SODIUM
     Indication: PRODUCT USED FOR UNKNOWN INDICATION
     Dosage: 800 MG, BID
     Route: 065
  6. CLOZARIL [Suspect]
     Active Substance: CLOZAPINE
     Dosage: 50 MG, BID
     Route: 048
  7. CLOZARIL [Suspect]
     Active Substance: CLOZAPINE
     Dosage: 100 OT, UNK
     Route: 048
     Dates: start: 20110117

REACTIONS (10)
  - Musculoskeletal pain [Unknown]
  - Hypothermia [Unknown]
  - Sinus tachycardia [Unknown]
  - Pyrexia [Unknown]
  - Hypotension [Unknown]
  - Viral infection [Unknown]
  - Myocarditis [Unknown]
  - Chest pain [Unknown]
  - Influenza like illness [Unknown]
  - Back pain [Unknown]
